FAERS Safety Report 25406329 (Version 3)
Quarter: 2025Q3

REPORT INFORMATION
  Report Type: Spontaneous
  Country: JP (occurrence: JP)
  Receive Date: 20250606
  Receipt Date: 20250910
  Transmission Date: 20251020
  Serious: Yes (Death, Other)
  Sender: CLINIGEN
  Company Number: JP-CLINIGEN-CLI2025000066

PATIENT

DRUGS (2)
  1. FOSCARNET SODIUM [Suspect]
     Active Substance: FOSCARNET SODIUM
     Indication: Cytomegalovirus myelomeningoradiculitis
     Route: 065
     Dates: start: 20240604, end: 20240729
  2. GANCICLOVIR [Suspect]
     Active Substance: GANCICLOVIR
     Indication: Cytomegalovirus myelomeningoradiculitis
     Route: 065
     Dates: start: 20240523, end: 20240605

REACTIONS (2)
  - Encephalitis cytomegalovirus [Fatal]
  - Myelosuppression [Recovered/Resolved]

NARRATIVE: CASE EVENT DATE: 20240603
